FAERS Safety Report 4318588-8 (Version None)
Quarter: 2004Q1

REPORT INFORMATION
  Report Type: 
  Country: None (occurrence: None)
  Receive Date: 20040318
  Receipt Date: 20040308
  Transmission Date: 20041129
  Serious: Yes (Hospitalization, Other)
  Sender: FDA-Public Use
  Company Number: PHRM2004FR01134

PATIENT
  Age: 68 Year
  Sex: Female

DRUGS (6)
  1. AREDIA [Suspect]
     Indication: MULTIPLE MYELOMA
     Dosage: 90 MG, QMO
     Dates: start: 20030717, end: 20030827
  2. TOPALGIC [Concomitant]
  3. EPREX [Concomitant]
  4. STILNOX [Concomitant]
  5. THALIDOMIDE [Concomitant]
     Dosage: 200 MG, QD
     Route: 042
     Dates: start: 20030128, end: 20030827
  6. MOPRAL [Concomitant]

REACTIONS (7)
  - CSF PROTEIN INCREASED [None]
  - DEPRESSED LEVEL OF CONSCIOUSNESS [None]
  - EPILEPSY [None]
  - HYPOREFLEXIA [None]
  - MENINGIOMA [None]
  - PUPILLARY REFLEX IMPAIRED [None]
  - STATUS EPILEPTICUS [None]
